FAERS Safety Report 8955698 (Version 1)
Quarter: 2012Q4

REPORT INFORMATION
  Report Type: 
  Country: US (occurrence: US)
  Receive Date: 20121210
  Receipt Date: 20121210
  Transmission Date: 20130627
  Serious: Yes (Other)
  Sender: FDA-Public Use
  Company Number: US-JNJCP-30000138375

PATIENT
  Sex: Male
  Weight: 59 kg

DRUGS (5)
  1. NEUTROGENA OIL-FREE ACNE WASH CLEAR SKIN WIPES [Suspect]
     Indication: ACNE
     Dosage: two pumps each time, four times in a three days
     Route: 061
     Dates: start: 20121117, end: 20121119
  2. UNSPECIFIED DRUG [Concomitant]
  3. UNSPECIFIED DRUG [Concomitant]
  4. UNSPECIFIED DRUG [Concomitant]
  5. UNSPECIFIED DRUG [Concomitant]

REACTIONS (3)
  - Application site anaesthesia [Not Recovered/Not Resolved]
  - Dyskinesia [Not Recovered/Not Resolved]
  - Consumer had hard time closing eyelids [Not Recovered/Not Resolved]
